FAERS Safety Report 21366253 (Version 1)
Quarter: 2022Q3

REPORT INFORMATION
  Report Type: Spontaneous
  Country: US (occurrence: US)
  Receive Date: 20220922
  Receipt Date: 20220922
  Transmission Date: 20221026
  Serious: No
  Sender: FDA-Public Use
  Company Number: US-PURDUE PHARMA-USA-2022-0291468

PATIENT
  Age: 62 Year
  Sex: Female
  Weight: 60.317 kg

DRUGS (2)
  1. BUPRENORPHINE [Suspect]
     Active Substance: BUPRENORPHINE
     Indication: Nerve injury
     Dosage: 20 MCG/HR, WEEKLY
     Route: 062
     Dates: start: 201911
  2. BUPRENORPHINE [Suspect]
     Active Substance: BUPRENORPHINE
     Indication: Back pain
     Dosage: 20 MCG/HR, WEEKLY
     Route: 062
     Dates: start: 201911

REACTIONS (4)
  - Drug ineffective [Unknown]
  - Application site rash [Recovered/Resolved]
  - Application site pruritus [Recovered/Resolved]
  - Product complaint [Unknown]

NARRATIVE: CASE EVENT DATE: 20191101
